FAERS Safety Report 8427387-7 (Version None)
Quarter: 2012Q2

REPORT INFORMATION
  Report Type: 
  Country: None (occurrence: None)
  Receive Date: 20120611
  Receipt Date: 20120601
  Transmission Date: 20120825
  Serious: Yes (Hospitalization)
  Sender: FDA-Public Use
  Company Number: US-MERCK-1201USA00756

PATIENT
  Age: 68 Year
  Sex: Female
  Weight: 60 kg

DRUGS (6)
  1. ALLEGRA [Concomitant]
     Indication: SEASONAL ALLERGY
     Route: 065
  2. BONIVA [Suspect]
     Route: 065
     Dates: start: 19990101, end: 20101001
  3. ACTONEL [Suspect]
     Route: 065
     Dates: start: 19990101, end: 20101001
  4. FOSAMAX [Suspect]
     Indication: OSTEOPOROSIS
     Route: 048
     Dates: start: 19990505, end: 20101001
  5. FOSAMAX [Suspect]
     Route: 048
     Dates: end: 20101001
  6. LASIX [Concomitant]
     Indication: OEDEMA
     Route: 065

REACTIONS (25)
  - OSTEOARTHRITIS [None]
  - BACK PAIN [None]
  - VITAMIN B12 DEFICIENCY [None]
  - FALL [None]
  - FEMUR FRACTURE [None]
  - COLITIS MICROSCOPIC [None]
  - ADVERSE EVENT [None]
  - CHOLELITHIASIS [None]
  - SPINAL COMPRESSION FRACTURE [None]
  - ARTHRALGIA [None]
  - SPONDYLOLISTHESIS [None]
  - LIGAMENT SPRAIN [None]
  - HEPATITIS B [None]
  - SPONDYLOLYSIS [None]
  - BLOOD CHOLESTEROL INCREASED [None]
  - ENTEROCOLITIS INFECTIOUS [None]
  - PROCTITIS [None]
  - HAEMORRHOIDS [None]
  - GASTRITIS [None]
  - ECCHYMOSIS [None]
  - ANXIETY [None]
  - CAROTID ARTERY STENOSIS [None]
  - ESSENTIAL HYPERTENSION [None]
  - FOOT DEFORMITY [None]
  - PAIN IN EXTREMITY [None]
